FAERS Safety Report 15586581 (Version 1)
Quarter: 2018Q4

REPORT INFORMATION
  Report Type: Spontaneous
  Country: US (occurrence: US)
  Receive Date: 20181101
  Receipt Date: 20181101
  Transmission Date: 20190205
  Serious: No
  Sender: FDA-Public Use
  Company Number: None

PATIENT
  Age: 65 Year
  Sex: Male
  Weight: 117 kg

DRUGS (1)
  1. XARELTO [Suspect]
     Active Substance: RIVAROXABAN
     Dosage: ?          QUANTITY:30 DF DOSAGE FORM;?
     Route: 048
     Dates: start: 20161219

REACTIONS (5)
  - Peripheral swelling [None]
  - Therapy cessation [None]
  - Pain [None]
  - Skin discolouration [None]
  - Unevaluable event [None]

NARRATIVE: CASE EVENT DATE: 20181009
